FAERS Safety Report 21689742 (Version 1)
Quarter: 2022Q4

REPORT INFORMATION
  Report Type: Report from Study
  Country: US (occurrence: US)
  Receive Date: 20221206
  Receipt Date: 20221206
  Transmission Date: 20230113
  Serious: No
  Sender: FDA-Public Use
  Company Number: US-ABBVIE-4180988

PATIENT
  Sex: Male
  Weight: 127 kg

DRUGS (6)
  1. HUMIRA [Suspect]
     Active Substance: ADALIMUMAB
     Indication: Hidradenitis
     Dosage: OVER A YEAR?STRENGTH 80 MILLIGRAM?CITRATE FREE
     Route: 058
  2. TOZINAMERAN [Concomitant]
     Active Substance: TOZINAMERAN
     Indication: COVID-19 immunisation
     Dosage: PFIZER?SECOND BOOSTER DOSE?FREQUENCY ONE IN ONCE
     Route: 030
     Dates: start: 20221025, end: 20221025
  3. TOZINAMERAN [Concomitant]
     Active Substance: TOZINAMERAN
     Indication: COVID-19 immunisation
     Dosage: PFIZER?BOOSTER DOSE?FREQUENCY ONE IN ONCE
     Route: 030
     Dates: start: 20220111, end: 20220111
  4. TOZINAMERAN [Concomitant]
     Active Substance: TOZINAMERAN
     Indication: COVID-19 immunisation
     Dosage: PFIZER?FIRST DOSE?FREQUENCY ONE IN ONCE
     Route: 030
     Dates: start: 20210408, end: 20210408
  5. TOZINAMERAN [Concomitant]
     Active Substance: TOZINAMERAN
     Indication: COVID-19 immunisation
     Dosage: PFIZER?SECOND DOSE?FREQUENCY ONE IN ONCE
     Route: 030
     Dates: start: 20210506, end: 20210506
  6. ALBUTEROL [Concomitant]
     Active Substance: ALBUTEROL
     Indication: Asthma

REACTIONS (2)
  - Hidradenitis [Not Recovered/Not Resolved]
  - Drug ineffective [Unknown]
